FAERS Safety Report 23235434 (Version 2)
Quarter: 2023Q4

REPORT INFORMATION
  Report Type: Spontaneous
  Country: US (occurrence: US)
  Receive Date: 20231128
  Receipt Date: 20231207
  Transmission Date: 20240110
  Serious: Yes (Hospitalization, Other)
  Sender: FDA-Public Use
  Company Number: US-MLMSERVICE-20231116-4669313-1

PATIENT
  Age: 28 Year
  Sex: Female

DRUGS (2)
  1. MAGNESIUM SULFATE [Suspect]
     Active Substance: MAGNESIUM SULFATE\MAGNESIUM SULFATE HEPTAHYDRATE
     Indication: Seizure prophylaxis
     Dosage: 4 G, SINGLE, BOLUS
     Route: 042
  2. MAGNESIUM SULFATE [Suspect]
     Active Substance: MAGNESIUM SULFATE\MAGNESIUM SULFATE HEPTAHYDRATE
     Indication: Pre-eclampsia
     Dosage: 2 G, SINGLE, MAINTENANCE
     Route: 042

REACTIONS (3)
  - Hypocalcaemia [Recovered/Resolved]
  - Blood parathyroid hormone increased [Recovered/Resolved]
  - Hypermagnesaemia [Recovered/Resolved]
